FAERS Safety Report 6934285-4 (Version None)
Quarter: 2010Q3

REPORT INFORMATION
  Report Type: 
  Country: None (occurrence: None)
  Receive Date: 20100820
  Receipt Date: 20100809
  Transmission Date: 20110219
  Serious: Yes (Hospitalization)
  Sender: FDA-Public Use
  Company Number: A0790025A

PATIENT
  Age: 53 Year
  Sex: Male
  Weight: 109.1 kg

DRUGS (10)
  1. AVANDIA [Suspect]
     Indication: DIABETES MELLITUS
     Route: 048
  2. AVANDAMET [Suspect]
     Indication: DIABETES MELLITUS
     Route: 048
     Dates: start: 20000101, end: 20080101
  3. PRILOSEC [Concomitant]
  4. ZANTAC [Concomitant]
  5. LISINOPRIL [Concomitant]
  6. SIMVASTATIN [Concomitant]
  7. EFFEXOR [Concomitant]
  8. PERCOCET [Concomitant]
  9. FLEXERIL [Concomitant]
  10. JANUVIA [Concomitant]

REACTIONS (6)
  - CARDIAC DISORDER [None]
  - CARDIOVASCULAR DISORDER [None]
  - DRESSLER'S SYNDROME [None]
  - MYOCARDIAL INFARCTION [None]
  - PLEURISY [None]
  - PRESYNCOPE [None]
